FAERS Safety Report 6162279-8 (Version None)
Quarter: 2009Q2

REPORT INFORMATION
  Report Type: 
  Country: None (occurrence: None)
  Receive Date: 20090421
  Receipt Date: 20090311
  Transmission Date: 20091009
  Serious: No
  Sender: FDA-Public Use
  Company Number: JP-PFIZER INC-2009177094

PATIENT

DRUGS (2)
  1. ZYVOX [Suspect]
     Indication: STAPHYLOCOCCAL SEPSIS
     Dosage: FREQUENCY: 2X/DAY,
  2. MEROPEN [Concomitant]
     Dosage: UNK
     Dates: start: 20090216, end: 20090224

REACTIONS (2)
  - C-REACTIVE PROTEIN INCREASED [None]
  - PYREXIA [None]
